FAERS Safety Report 7806264-6 (Version None)
Quarter: 2011Q4

REPORT INFORMATION
  Report Type: 
  Country: None (occurrence: None)
  Receive Date: 20111011
  Receipt Date: 20110930
  Transmission Date: 20120403
  Serious: Yes (Hospitalization)
  Sender: FDA-Public Use
  Company Number: US-JNJFOC-20111000961

PATIENT
  Sex: Male
  Weight: 63.5 kg

DRUGS (3)
  1. ADALIMUMAB [Concomitant]
     Dates: start: 20110521
  2. ADALIMUMAB [Concomitant]
     Dates: start: 20091130
  3. REMICADE [Suspect]
     Indication: INFLAMMATORY BOWEL DISEASE
     Route: 042
     Dates: start: 20080830, end: 20090814

REACTIONS (1)
  - CROHN'S DISEASE [None]
